FAERS Safety Report 18744479 (Version 2)
Quarter: 2021Q1

REPORT INFORMATION
  Report Type: Spontaneous
  Country: IN (occurrence: IN)
  Receive Date: 20210115
  Receipt Date: 20210125
  Transmission Date: 20210419
  Serious: Yes (Other)
  Sender: FDA-Public Use
  Company Number: IN-DRREDDYS-USA/IND/21/0130924

PATIENT
  Age: 63 Year
  Sex: Female

DRUGS (2)
  1. INSULIN [Concomitant]
     Active Substance: INSULIN NOS
     Indication: TYPE 2 DIABETES MELLITUS
  2. ZOLEDRONIC ACID INJECTION 4MG/100ML [Suspect]
     Active Substance: ZOLEDRONIC ACID
     Indication: BREAST CANCER
     Dosage: 7 DOSES 6 MONTHLY 4 MG ZOLEDRONIC ACID 2016?2019]
     Route: 042
     Dates: start: 2016, end: 2019

REACTIONS (6)
  - Bone erosion [Recovered/Resolved]
  - Osteonecrosis of external auditory canal [Recovered/Resolved]
  - Otitis externa [Recovered/Resolved]
  - Otitis media [Recovered/Resolved]
  - Ear infection bacterial [Recovered/Resolved]
  - Pseudomonas infection [Recovered/Resolved]

NARRATIVE: CASE EVENT DATE: 201910
